FAERS Safety Report 4400729-5 (Version None)
Quarter: 2004Q3

REPORT INFORMATION
  Report Type: 
  Country: None (occurrence: None)
  Receive Date: 20040716
  Receipt Date: 20040716
  Transmission Date: 20050211
  Serious: Yes (Death)
  Sender: FDA-Public Use
  Company Number: None

PATIENT
  Sex: Female
  Weight: 53.9 kg

DRUGS (2)
  1. DOCETAXEL [Suspect]
     Indication: LUNG CANCER METASTATIC
     Dosage: 30 MG/M2 - WKLY
     Dates: start: 20040406, end: 20040608
  2. OSI-774 [Suspect]
     Indication: LUNG CANCER METASTATIC
     Dosage: 150 MG Q DAY
     Dates: start: 20040406, end: 20040608

REACTIONS (1)
  - DEATH [None]
